FAERS Safety Report 6693731-4 (Version None)
Quarter: 2010Q2

REPORT INFORMATION
  Report Type: 
  Country: None (occurrence: None)
  Receive Date: 20100421
  Receipt Date: 20100406
  Transmission Date: 20101027
  Serious: Yes (Hospitalization)
  Sender: FDA-Public Use
  Company Number: 2010001285

PATIENT
  Age: 46 Year
  Sex: Female
  Weight: 58.0604 kg

DRUGS (13)
  1. ERLOTINIB (ERLOTINIB) (TABLET) (ERLOTINIB) [Suspect]
     Indication: NON-SMALL CELL LUNG CANCER
     Dosage: (100 MG,QD), ORAL
     Route: 048
     Dates: start: 20100210, end: 20100225
  2. ERLOTINIB (ERLOTINIB) (TABLET) (ERLOTINIB) [Suspect]
     Indication: NON-SMALL CELL LUNG CANCER
     Dosage: (100 MG,QD), ORAL
     Route: 048
     Dates: start: 20100227, end: 20100301
  3. ERLOTINIB (ERLOTINIB) (TABLET) (ERLOTINIB) [Suspect]
     Indication: NON-SMALL CELL LUNG CANCER
     Dosage: (100 MG,QD), ORAL
     Route: 048
     Dates: start: 20100309, end: 20100311
  4. PF-02341066 [Suspect]
     Indication: NON-SMALL CELL LUNG CANCER
     Dosage: (200 MG,BID),ORAL;  (150 MG,BID),ORAL
     Route: 048
     Dates: start: 20100217, end: 20100225
  5. PF-02341066 [Suspect]
     Indication: NON-SMALL CELL LUNG CANCER
     Dosage: (200 MG,BID),ORAL;  (150 MG,BID),ORAL
     Route: 048
     Dates: start: 20100309, end: 20100311
  6. PF-02341066 [Suspect]
     Indication: NON-SMALL CELL LUNG CANCER
     Dosage: (200 MG,BID),ORAL;  (150 MG,BID),ORAL
     Route: 048
     Dates: start: 20100227
  7. LEVOTHYROXINE SODIUM [Concomitant]
  8. HYDROCODONE (HYDROCODONE) [Concomitant]
  9. ZOLEDRONIC ACID [Concomitant]
  10. ALUMINUM HYDROXIDE AND MAGNESIUM TRISILICATE [Concomitant]
  11. ZOFRAN [Concomitant]
  12. OMEPRAZOLE [Concomitant]
  13. IBUPROFEN [Concomitant]

REACTIONS (5)
  - CHEST DISCOMFORT [None]
  - CHEST PAIN [None]
  - EROSIVE OESOPHAGITIS [None]
  - GASTRITIS [None]
  - OESOPHAGEAL STENOSIS [None]
